FAERS Safety Report 5090845-X (Version None)
Quarter: 2006Q3

REPORT INFORMATION
  Report Type: 
  Country: None (occurrence: None)
  Receive Date: 20060823
  Receipt Date: 20060809
  Transmission Date: 20061208
  Serious: Yes (Other)
  Sender: FDA-Public Use
  Company Number: B0434573A

PATIENT
  Age: 26 Year
  Sex: Male

DRUGS (9)
  1. EPIVIR (FORMULATIION UNKNOWN)  (LAMIVUDINE) [Suspect]
     Indication: HIV INFECTION
  2. STAVUDINE [Suspect]
     Indication: HIV INFECTION
  3. NELFINAVIR MESYLATE (NELFINAVIR MESYLATE) [Suspect]
     Indication: HIV INFECTION
  4. DIDANOSINE [Suspect]
     Indication: HIV INFECTION
  5. NEVIRAPINE [Suspect]
     Indication: HIV INFECTION
  6. FLUCONAZOLE [Concomitant]
  7. CO-TRIMOXAZOLE [Concomitant]
  8. ZIDOVUDINE [Concomitant]
  9. LOPINAVIR + RITONAVIR [Concomitant]

REACTIONS (11)
  - BRAIN OEDEMA [None]
  - CENTRAL NERVOUS SYSTEM LESION [None]
  - CRYPTOCOCCOSIS [None]
  - CSF GLUCOSE DECREASED [None]
  - CSF LACTATE DECREASED [None]
  - DEAFNESS UNILATERAL [None]
  - GRANULOMA [None]
  - IMMUNE RECONSTITUTION SYNDROME [None]
  - LYMPHADENOPATHY [None]
  - PLEOCYTOSIS [None]
  - THERAPEUTIC RESPONSE DECREASED [None]
